FAERS Safety Report 23982152 (Version 1)
Quarter: 2024Q2

REPORT INFORMATION
  Report Type: Spontaneous
  Country: US (occurrence: US)
  Receive Date: 20240617
  Receipt Date: 20240617
  Transmission Date: 20240715
  Serious: Yes (Hospitalization, Other)
  Sender: FDA-Public Use
  Company Number: US-OPELLA-2024OHG020094

PATIENT
  Age: 20 Year
  Sex: Male

DRUGS (1)
  1. UNISOM SLEEPMELTS [Suspect]
     Active Substance: DIPHENHYDRAMINE HYDROCHLORIDE
     Indication: Product used for unknown indication
     Route: 065

REACTIONS (18)
  - Hypoxia [Unknown]
  - Multiple organ dysfunction syndrome [Unknown]
  - Hepatic failure [Unknown]
  - Renal failure [Unknown]
  - Pseudomonas infection [Unknown]
  - Stenotrophomonas infection [Unknown]
  - Acute right ventricular failure [Unknown]
  - Pulmonary haemorrhage [Unknown]
  - Cerebral haemorrhage [Unknown]
  - Mental status changes [Unknown]
  - Hypotension [Unknown]
  - Anaemia [Unknown]
  - Shock [Unknown]
  - Pulmonary arterial pressure increased [Unknown]
  - Right ventricular enlargement [Unknown]
  - Thrombocytopenia [Unknown]
  - Seizure [Unknown]
  - Intentional overdose [Unknown]
